FAERS Safety Report 16890150 (Version 2)
Quarter: 2019Q4

REPORT INFORMATION
  Report Type: Spontaneous
  Country: US (occurrence: US)
  Receive Date: 20191007
  Receipt Date: 20191107
  Transmission Date: 20200122
  Serious: No
  Sender: FDA-Public Use
  Company Number: US-MYLANLABS-2019M1089628

PATIENT
  Age: 77 Year
  Sex: Female
  Weight: 63 kg

DRUGS (5)
  1. BABY ASPIRIN [Concomitant]
     Active Substance: ASPIRIN
     Dosage: 81 MILLIGRAM, QD
  2. BENADRYL [Concomitant]
     Active Substance: DIPHENHYDRAMINE HYDROCHLORIDE
     Dosage: 25MG AS NEEDED
     Route: 048
     Dates: start: 20190923
  3. PRILOSEC [Concomitant]
     Active Substance: OMEPRAZOLE MAGNESIUM
     Indication: DYSPEPSIA
     Dosage: 20MG AS NEEDED
     Dates: start: 20190922
  4. EPINEPHRINE INJECTION USP AUTO-INJECTOR [Suspect]
     Active Substance: EPINEPHRINE
     Indication: FOOD ALLERGY
     Dosage: 3 MILLIGRAM, ONCE (8 MONTH (1) IN EACH THIGH TWO HOURS APART)
     Route: 030
     Dates: start: 20190923, end: 20190923
  5. EPINEPHRINE INJECTION USP AUTO-INJECTOR [Suspect]
     Active Substance: EPINEPHRINE
     Indication: SWELLING FACE

REACTIONS (2)
  - Hypersensitivity [Unknown]
  - Injection site haemorrhage [Recovered/Resolved]

NARRATIVE: CASE EVENT DATE: 20190923
